FAERS Safety Report 7386626-4 (Version None)
Quarter: 2011Q1

REPORT INFORMATION
  Report Type: 
  Country: None (occurrence: None)
  Receive Date: 20110331
  Receipt Date: 20110323
  Transmission Date: 20110831
  Serious: Yes (Other)
  Sender: FDA-Public Use
  Company Number: NL-ROCHE-767441

PATIENT

DRUGS (10)
  1. PACLITAXEL [Suspect]
     Indication: NON-SMALL CELL LUNG CANCER
     Dosage: LAST DOSE PRIOR TO SASE: 08 MARCH 2011
     Route: 065
     Dates: start: 20110215
  2. ASPIRIN [Concomitant]
  3. OXYCONTIN [Concomitant]
  4. BEVACIZUMAB [Suspect]
     Indication: NON-SMALL CELL LUNG CANCER
     Dosage: LAST DOSE PRIOR TO SAE: 8 MARCH 2011
     Route: 065
     Dates: start: 20110215
  5. METOPROLOL [Concomitant]
  6. ATORVASTATIN CALCIUM [Concomitant]
  7. SPIRONO [Concomitant]
  8. PARACETAMOL [Concomitant]
  9. CARBOPLATIN [Suspect]
     Indication: NON-SMALL CELL LUNG CANCER
     Dosage: LAST DOSE PRIOR TO SAE: 08 MARCH 2011
     Route: 065
     Dates: start: 20110215
  10. PANZYNORM [Concomitant]

REACTIONS (1)
  - PNEUMOTHORAX [None]
